FAERS Safety Report 16921297 (Version 2)
Quarter: 2020Q1

REPORT INFORMATION
  Report Type: Spontaneous
  Country: US (occurrence: US)
  Receive Date: 20191015
  Receipt Date: 20200211
  Transmission Date: 20200409
  Serious: Yes (Other)
  Sender: FDA-Public Use
  Company Number: US-SA-2019SA278849

PATIENT
  Age: 53 Year
  Sex: Female
  Weight: 81 kg

DRUGS (9)
  1. SIMVASTATIN. [Concomitant]
     Active Substance: SIMVASTATIN
     Dosage: UNK
     Dates: start: 1999
  2. EFUDEX [Concomitant]
     Active Substance: FLUOROURACIL
     Indication: BREAST CANCER FEMALE
  3. TAXOTERE [Suspect]
     Active Substance: DOCETAXEL
     Indication: BREAST CANCER FEMALE
     Dosage: 200 MG, Q3W
     Route: 042
     Dates: start: 20041020, end: 20041020
  4. TAXOTERE [Suspect]
     Active Substance: DOCETAXEL
     Dosage: 200 MG, Q3W
     Route: 042
     Dates: start: 20041229, end: 20041229
  5. AMLODIPINE [Concomitant]
     Active Substance: AMLODIPINE BESYLATE
     Dosage: UNK
     Dates: start: 1999
  6. LOSARTAN POTASSIUM. [Concomitant]
     Active Substance: LOSARTAN POTASSIUM
     Dosage: UNK
     Dates: start: 2000
  7. ADRIAMYCIN [Concomitant]
     Active Substance: DOXORUBICIN HYDROCHLORIDE
     Indication: BREAST CANCER FEMALE
  8. METOPROLOL. [Concomitant]
     Active Substance: METOPROLOL
     Dosage: UNK
     Dates: start: 1979
  9. NEOSAR [Concomitant]
     Active Substance: CYCLOPHOSPHAMIDE
     Indication: BREAST CANCER FEMALE

REACTIONS (2)
  - Psychological trauma [Unknown]
  - Alopecia [Recovering/Resolving]

NARRATIVE: CASE EVENT DATE: 200411
